FAERS Safety Report 15420329 (Version 1)
Quarter: 2018Q3

REPORT INFORMATION
  Report Type: Spontaneous
  Country: US (occurrence: US)
  Receive Date: 20180924
  Receipt Date: 20180924
  Transmission Date: 20181010
  Serious: No
  Sender: FDA-Public Use
  Company Number: US-B.I. PHARMACEUTICALS,INC./RIDGEFIELD-2018-BI-046644

PATIENT
  Age: 68 Year
  Sex: Male

DRUGS (9)
  1. BENADRYL [Concomitant]
     Active Substance: DIPHENHYDRAMINE HYDROCHLORIDE
     Indication: INSOMNIA
     Dosage: 1 TABLET Q HS;  FORM STRENGTH: 25 MG; FORMULATION: TABLET
     Route: 048
  2. NAPROSYN [Concomitant]
     Active Substance: NAPROXEN
     Indication: DIFFUSE IDIOPATHIC SKELETAL HYPEROSTOSIS
     Dosage: 2 TABLETS BID;  FORM STRENGTH: 375 MG; FORMULATION: TABLET
     Route: 048
  3. PRILOSEC [Concomitant]
     Active Substance: OMEPRAZOLE MAGNESIUM
     Indication: BARRETT^S OESOPHAGUS
     Dosage: BID;  FORM STRENGTH: 20 MG; FORMULATION: CAPSULE
     Route: 048
  4. AMARYL [Concomitant]
     Active Substance: GLIMEPIRIDE
     Indication: TYPE 2 DIABETES MELLITUS
     Dosage: BID;  FORM STRENGTH: 3 MG; FORMULATION: TABLET
     Route: 048
     Dates: start: 201807
  5. JARDIANCE [Suspect]
     Active Substance: EMPAGLIFLOZIN
     Indication: TYPE 2 DIABETES MELLITUS
     Dosage: FORM STRENGTH: 10 MG; ? ADMINISTRATION CORRECT? YES ?ACTION(S) TAKEN WITH PRODUCT: DOSE NOT CHANGED
     Route: 048
     Dates: start: 20180905
  6. PRILOSEC [Concomitant]
     Active Substance: OMEPRAZOLE MAGNESIUM
     Indication: GASTROOESOPHAGEAL REFLUX DISEASE
  7. ADVAIR HFA [Concomitant]
     Active Substance: FLUTICASONE PROPIONATE\SALMETEROL XINAFOATE
     Indication: CHRONIC OBSTRUCTIVE PULMONARY DISEASE
     Dosage: 1 INHALATION BID;  FORM STRENGTH: 500 MCG/50MCG; FORMULATION: INHALATION AEROSOL
     Route: 055
     Dates: start: 1996
  8. THEOPHYLLINE [Concomitant]
     Active Substance: THEOPHYLLINE ANHYDROUS
     Indication: DYSPNOEA
     Dosage: BID;  FORM STRENGTH: 300 MG; FORMULATION: CAPSULE
     Route: 048
  9. HYDROCHLOROTHIAZIDE. [Concomitant]
     Active Substance: HYDROCHLOROTHIAZIDE
     Indication: HYPERTENSION
     Dosage: 1 TABLET 1 TIME DAILY;  FORM STRENGTH: 12.5 MG; FORMULATION: TABLET
     Route: 048

REACTIONS (3)
  - Urine output increased [Not Recovered/Not Resolved]
  - Micturition urgency [Not Recovered/Not Resolved]
  - Dyspnoea [Not Recovered/Not Resolved]

NARRATIVE: CASE EVENT DATE: 201809
